FAERS Safety Report 8552701-1 (Version None)
Quarter: 2012Q3

REPORT INFORMATION
  Report Type: 
  Country: None (occurrence: None)
  Receive Date: 20120731
  Receipt Date: 20120717
  Transmission Date: 20120928
  Serious: Yes (Other)
  Sender: FDA-Public Use
  Company Number: PL-MYLANLABS-2012S1014857

PATIENT
  Age: 59 Year
  Sex: Male

DRUGS (4)
  1. ARIPIPRAZOLE [Interacting]
     Indication: BIPOLAR DISORDER
     Dosage: 15 MG/DAY
     Route: 065
  2. VALPROIC ACID [Concomitant]
     Indication: BIPOLAR DISORDER
     Route: 065
  3. LITHIUM CARBONATE [Suspect]
     Indication: BIPOLAR DISORDER
     Route: 048
  4. OLANZAPINE [Concomitant]
     Indication: BIPOLAR DISORDER
     Route: 065

REACTIONS (3)
  - TOXICITY TO VARIOUS AGENTS [None]
  - NEUROLEPTIC MALIGNANT SYNDROME [None]
  - DRUG INTERACTION [None]
